FAERS Safety Report 8171837-0 (Version None)
Quarter: 2012Q1

REPORT INFORMATION
  Report Type: 
  Country: None (occurrence: None)
  Receive Date: 20120113
  Receipt Date: 20111130
  Transmission Date: 20120608
  Serious: Yes (Other)
  Sender: FDA-Public Use
  Company Number: 2011S1000113

PATIENT
  Age: 52 Year
  Sex: Male
  Weight: 149.687 kg

DRUGS (10)
  1. KRYSTEXXA [Suspect]
     Indication: GOUTY TOPHUS
     Dosage: 8 MG;X1;IV
     Route: 042
     Dates: start: 20111129, end: 20111129
  2. BENADRYL /00945501/ [Concomitant]
  3. AMLODIPINE [Concomitant]
  4. NEXIUM /01479303/ [Concomitant]
  5. SOLU-CORTEF [Concomitant]
  6. ULORIC [Concomitant]
  7. LANTUS [Concomitant]
  8. VITAMIN D /00318501/ [Concomitant]
  9. LISINOPRIL [Concomitant]
  10. ASPIRIN [Concomitant]

REACTIONS (1)
  - INFUSION RELATED REACTION [None]
